FAERS Safety Report 8513020-2 (Version None)
Quarter: 2012Q3

REPORT INFORMATION
  Report Type: 
  Country: None (occurrence: None)
  Receive Date: 20120716
  Receipt Date: 20120710
  Transmission Date: 20120928
  Serious: Yes (Hospitalization)
  Sender: FDA-Public Use
  Company Number: DE-TEVA-347725GER

PATIENT
  Sex: Female
  Weight: 73 kg

DRUGS (9)
  1. DOXORUBICIN HCL [Suspect]
     Indication: BREAST CANCER
     Route: 042
     Dates: start: 20120319
  2. DOXORUBICIN HCL [Suspect]
     Route: 042
     Dates: start: 20120521
  3. PACLITAXEL [Suspect]
     Indication: BREAST CANCER
     Route: 042
     Dates: start: 20120319
  4. LAPATINIB [Suspect]
     Indication: BREAST CANCER
     Dosage: 750 MILLIGRAM;
     Route: 048
     Dates: start: 20120319
  5. HERCEPTIN [Suspect]
     Indication: BREAST CANCER
     Route: 042
     Dates: start: 20120319
  6. PACLITAXEL [Suspect]
     Route: 042
     Dates: start: 20120521
  7. LAPATINIB [Suspect]
     Dosage: 500 MILLIGRAM;
     Route: 048
     Dates: start: 20120521
  8. LEVOTHYROXINE SODIUM [Concomitant]
     Dosage: 75 MICROGRAM;
  9. RAMIPRIL [Concomitant]
     Dosage: 10 MILLIGRAM;

REACTIONS (1)
  - PLEURISY [None]
